FAERS Safety Report 6263259-4 (Version None)
Quarter: 2009Q3

REPORT INFORMATION
  Report Type: 
  Country: None (occurrence: None)
  Receive Date: 20090708
  Receipt Date: 20090708
  Transmission Date: 20100115
  Serious: Yes (Other)
  Sender: FDA-Public Use
  Company Number: None

PATIENT
  Age: 62 Year
  Sex: Male
  Weight: 79.3795 kg

DRUGS (2)
  1. ZICAM NASAL SWABS [Suspect]
     Indication: HYPERSENSITIVITY
     Dates: start: 20080101, end: 20081231
  2. ZICAM NASAL SWABS [Suspect]
     Indication: NASOPHARYNGITIS
     Dates: start: 20080101, end: 20081231

REACTIONS (1)
  - ANOSMIA [None]
